APPROVED DRUG PRODUCT: FEXOFENADINE HYDROCHLORIDE ALLERGY
Active Ingredient: FEXOFENADINE HYDROCHLORIDE
Strength: 60MG
Dosage Form/Route: TABLET;ORAL
Application: A077081 | Product #006
Applicant: RISING PHARMA HOLDINGS INC
Approved: Jul 21, 2011 | RLD: No | RS: No | Type: OTC